FAERS Safety Report 8006161-X (Version None)
Quarter: 2011Q4

REPORT INFORMATION
  Report Type: 
  Country: None (occurrence: None)
  Receive Date: 20111226
  Receipt Date: 20111215
  Transmission Date: 20120403
  Serious: Yes (Other)
  Sender: FDA-Public Use
  Company Number: JP-BRISTOL-MYERS SQUIBB COMPANY-16155558

PATIENT
  Age: 1 Day
  Sex: Male
  Weight: 1 kg

DRUGS (3)
  1. LENDORMIN [Concomitant]
     Dosage: TABS
     Dates: end: 20110331
  2. ABILIFY [Suspect]
     Route: 064
     Dates: end: 20110929
  3. BIPERIDEN HYDROCHLORIDE TAB [Concomitant]
     Dosage: TABS
     Dates: end: 20110414

REACTIONS (3)
  - TRISOMY 18 [None]
  - LOW BIRTH WEIGHT BABY [None]
  - PULMONARY FUNCTION TEST DECREASED [None]
